FAERS Safety Report 4945692-3 (Version None)
Quarter: 2006Q1

REPORT INFORMATION
  Report Type: 
  Country: None (occurrence: None)
  Receive Date: 20060316
  Receipt Date: 20060307
  Transmission Date: 20060701
  Serious: Yes (Other)
  Sender: FDA-Public Use
  Company Number: KR-AVENTIS-200612299GDDC

PATIENT
  Age: 68 Year
  Sex: Male

DRUGS (10)
  1. FLUOROURACIL [Suspect]
     Indication: ANAL CANCER METASTATIC
     Route: 042
  2. FLUOROURACIL [Suspect]
     Route: 042
  3. FLUOROURACIL [Suspect]
     Route: 042
  4. FLUOROURACIL [Suspect]
     Route: 042
  5. CISPLATIN [Suspect]
     Indication: ANAL CANCER METASTATIC
     Route: 042
  6. CISPLATIN [Suspect]
     Route: 042
  7. CISPLATIN [Suspect]
     Route: 042
  8. CISPLATIN [Suspect]
     Route: 042
  9. DEXAMETHASONE TAB [Concomitant]
     Indication: PROPHYLAXIS
     Route: 042
  10. ONDANSETRONE [Concomitant]
     Dosage: DOSE: 2 DOSES

REACTIONS (3)
  - AMMONIA INCREASED [None]
  - ENCEPHALOPATHY [None]
  - NEUROTOXICITY [None]
